FAERS Safety Report 4508333-5 (Version None)
Quarter: 2004Q4

REPORT INFORMATION
  Report Type: 
  Country: None (occurrence: None)
  Receive Date: 20041123
  Receipt Date: 20040108
  Transmission Date: 20050328
  Serious: No
  Sender: FDA-Public Use
  Company Number: US-GLAXOSMITHKLINE-A0491994A

PATIENT
  Age: 62 Year
  Sex: Female

DRUGS (8)
  1. WELLBUTRIN [Suspect]
     Indication: DEPRESSION
     Route: 048
     Dates: start: 19990101, end: 20031230
  2. LEVOXYL [Concomitant]
  3. CYTOMEL [Concomitant]
  4. ZYRTEC [Concomitant]
  5. ALLERGY SHOTS [Concomitant]
  6. EVISTA [Concomitant]
  7. DITROPAN [Concomitant]
  8. VIOXX [Concomitant]

REACTIONS (9)
  - BIPOLAR I DISORDER [None]
  - CONFUSIONAL STATE [None]
  - DISTURBANCE IN ATTENTION [None]
  - HEADACHE [None]
  - INSOMNIA [None]
  - LOGORRHOEA [None]
  - MEMORY IMPAIRMENT [None]
  - OBSESSIVE-COMPULSIVE DISORDER [None]
  - PHARMACEUTICAL PRODUCT COMPLAINT [None]
